FAERS Safety Report 4598419-1 (Version None)
Quarter: 2005Q1

REPORT INFORMATION
  Report Type: 
  Country: None (occurrence: None)
  Receive Date: 20050204
  Receipt Date: 20031118
  Transmission Date: 20050727
  Serious: Yes (Other)
  Sender: FDA-Public Use
  Company Number: PHEH2003US10734

PATIENT
  Age: 58 Year
  Sex: Female

DRUGS (4)
  1. CLOZARIL [Suspect]
     Indication: SCHIZOPHRENIA
     Dosage: 450 MG, QD, ORAL
     Route: 048
     Dates: start: 20031018, end: 20031114
  2. INSULIN (INSULIN)1 [Concomitant]
  3. ZYPREXA [Concomitant]
  4. PROLIXIN [Concomitant]

REACTIONS (2)
  - ALANINE AMINOTRANSFERASE INCREASED [None]
  - ASPARTATE AMINOTRANSFERASE INCREASED [None]
